FAERS Safety Report 5372028-9 (Version None)
Quarter: 2007Q2

REPORT INFORMATION
  Report Type: 
  Country: None (occurrence: None)
  Receive Date: 20070625
  Receipt Date: 20070607
  Transmission Date: 20071010
  Serious: Yes (Other)
  Sender: FDA-Public Use
  Company Number: DSA_61600_2007

PATIENT
  Age: 77 Year
  Sex: Male

DRUGS (6)
  1. DIHYDROERGOTAMINE [Suspect]
     Indication: MIGRAINE
     Dosage: (1 PACK OR 30 DROPS/DAY ORAL)
     Route: 048
     Dates: end: 19650101
  2. LISINOPRIL [Concomitant]
  3. FUROSEMIDE [Concomitant]
  4. PRAVASTATIN [Concomitant]
  5. FLUTICASONE PROPIONATE W/SALMETEROL XINAFOATE [Concomitant]
  6. BRICANYL [Concomitant]

REACTIONS (3)
  - CONFUSIONAL STATE [None]
  - DEPRESSED LEVEL OF CONSCIOUSNESS [None]
  - DYSPHASIA [None]
